FAERS Safety Report 7064357-8 (Version None)
Quarter: 2010Q4

REPORT INFORMATION
  Report Type: 
  Country: None (occurrence: None)
  Receive Date: 20101022
  Receipt Date: 20101022
  Transmission Date: 20110411
  Serious: Yes (Other)
  Sender: FDA-Public Use
  Company Number: None

PATIENT
  Sex: Female

DRUGS (1)
  1. CLARINEX-D 12 HOUR [Suspect]
     Indication: MULTIPLE ALLERGIES
     Dosage: 1 TAB. Q 12 HRS PO
     Route: 048
     Dates: start: 20100917, end: 20100920

REACTIONS (7)
  - DECREASED APPETITE [None]
  - DIZZINESS [None]
  - NAUSEA [None]
  - PRURITUS [None]
  - PYREXIA [None]
  - RASH [None]
  - SWELLING [None]
